FAERS Safety Report 13542311 (Version 1)
Quarter: 2017Q2

REPORT INFORMATION
  Report Type: Spontaneous
  Country: US (occurrence: US)
  Receive Date: 20170512
  Receipt Date: 20170512
  Transmission Date: 20170830
  Serious: Yes (Other)
  Sender: FDA-Public Use
  Company Number: US-ROCHE-768432

PATIENT
  Sex: Female
  Weight: 56.7 kg

DRUGS (2)
  1. KENALOG [Suspect]
     Active Substance: TRIAMCINOLONE ACETONIDE
     Indication: MACULAR OEDEMA
     Route: 065
  2. AVASTIN [Suspect]
     Active Substance: BEVACIZUMAB
     Indication: MACULAR OEDEMA
     Route: 031

REACTIONS (3)
  - Intraocular pressure increased [Not Recovered/Not Resolved]
  - Cerebrovascular accident [Unknown]
  - Visual impairment [Not Recovered/Not Resolved]
